FAERS Safety Report 4760315-4 (Version None)
Quarter: 2005Q3

REPORT INFORMATION
  Report Type: 
  Country: None (occurrence: None)
  Receive Date: 20050831
  Receipt Date: 20050812
  Transmission Date: 20060218
  Serious: Yes (Hospitalization, Other)
  Sender: FDA-Public Use
  Company Number: FR_050506463

PATIENT
  Age: 91 Year
  Sex: Female

DRUGS (6)
  1. FORTEO [Suspect]
     Indication: OSTEOPOROSIS
     Dosage: 20 UG DAY
     Dates: start: 20050502, end: 20050519
  2. CORDARONE [Concomitant]
  3. MEDIATENSYL (URAPIDIL) [Concomitant]
  4. MORPHINE SULFATE [Concomitant]
  5. DIGOXIN [Concomitant]
  6. MICARDIS [Concomitant]

REACTIONS (16)
  - ANAEMIA [None]
  - CARDIOACTIVE DRUG LEVEL INCREASED [None]
  - CONDITION AGGRAVATED [None]
  - DEHYDRATION [None]
  - HYPERKALAEMIA [None]
  - HYPOALBUMINAEMIA [None]
  - HYPONATRAEMIA [None]
  - HYPOTENSION [None]
  - INFLAMMATION [None]
  - MALAISE [None]
  - NAUSEA [None]
  - OVERDOSE [None]
  - PERITONITIS [None]
  - RENAL FAILURE [None]
  - SEPTIC SHOCK [None]
  - VOMITING [None]
